FAERS Safety Report 21673550 (Version 2)
Quarter: 2022Q4

REPORT INFORMATION
  Report Type: Report from Study
  Country: DE (occurrence: DE)
  Receive Date: 20221202
  Receipt Date: 20221202
  Transmission Date: 20230113
  Serious: Yes (Death, Life-Threatening, Hospitalization, Other)
  Sender: FDA-Public Use
  Company Number: DE-GlaxoSmithKline-D0055827A

PATIENT
  Age: 49 Year
  Sex: Male

DRUGS (13)
  1. FLUTICASONE PROPIONATE\SALMETEROL XINAFOATE [Suspect]
     Active Substance: FLUTICASONE PROPIONATE\SALMETEROL XINAFOATE
     Indication: Chronic obstructive pulmonary disease
     Dosage: 2 DF, QD (INHALATION POWDER/PRESSURISED INHALATION   )
     Route: 055
     Dates: start: 20040816, end: 20040905
  2. CLONIDINE [Suspect]
     Active Substance: CLONIDINE
     Indication: Alcohol withdrawal syndrome
     Dosage: 1350 MG, QD
     Route: 048
     Dates: start: 20040813, end: 20040905
  3. CLONIDINE [Suspect]
     Active Substance: CLONIDINE
     Indication: Alcohol abuse
     Dosage: 450 MG, QD
     Route: 048
     Dates: start: 20040813, end: 200409
  4. ALBUTEROL [Suspect]
     Active Substance: ALBUTEROL
     Indication: Chronic obstructive pulmonary disease
     Dosage: 4 DF, QD
     Route: 055
     Dates: start: 20040813, end: 200409
  5. ALBUTEROL [Suspect]
     Active Substance: ALBUTEROL
     Dosage: UNK UNK, QD (DOSE QUANTITY: 2)
     Route: 055
     Dates: start: 20040813, end: 20040905
  6. AQUAPHOR (XIPAMIDE) [Suspect]
     Active Substance: XIPAMIDE
     Indication: Hypertension
     Dosage: 80 MG, QD
     Route: 048
     Dates: start: 20040813, end: 200409
  7. SPIRONOLACTONE [Suspect]
     Active Substance: SPIRONOLACTONE
     Indication: Polyuria
     Dosage: 200 MG, QD
     Route: 048
     Dates: start: 20040813, end: 200409
  8. SPIRONOLACTONE [Suspect]
     Active Substance: SPIRONOLACTONE
     Dosage: 400 MG, QD
     Route: 048
     Dates: start: 20040813, end: 20040905
  9. PANTOZOL [Suspect]
     Active Substance: PANTOPRAZOLE SODIUM
     Indication: Prophylaxis
     Dosage: 40 MG, QD
     Route: 048
     Dates: start: 20040813, end: 20040905
  10. DIMETHINDENE [Suspect]
     Active Substance: DIMETHINDENE
     Indication: Rhinitis allergic
     Dosage: UNK UNK, QD
     Route: 048
     Dates: start: 20040817, end: 20040905
  11. PREDNISONE [Suspect]
     Active Substance: PREDNISONE
     Indication: Rash
     Dosage: 60 MG, QD
     Route: 048
     Dates: start: 20040904, end: 20040905
  12. ALLOPURINOL [Suspect]
     Active Substance: ALLOPURINOL
     Indication: Hyperuricaemia
     Dosage: 100 MG, QD
     Route: 048
     Dates: start: 20040905, end: 20040905
  13. AQUAPHOR (XIPAMIDE) [Suspect]
     Active Substance: XIPAMIDE
     Indication: Hypertension
     Dosage: 160 MG, QD
     Route: 048
     Dates: start: 20040813, end: 20040905

REACTIONS (12)
  - Toxic epidermal necrolysis [Fatal]
  - Nikolsky^s sign [Fatal]
  - Macule [Fatal]
  - Pain of skin [Fatal]
  - Pruritus [Fatal]
  - Erythema [Fatal]
  - Blister [Fatal]
  - Lip erosion [Fatal]
  - Conjunctivitis [Fatal]
  - Pyrexia [Fatal]
  - Oral mucosa erosion [Fatal]
  - Mouth ulceration [Fatal]

NARRATIVE: CASE EVENT DATE: 20040904
